FAERS Safety Report 23673194 (Version 1)
Quarter: 2024Q1

REPORT INFORMATION
  Report Type: Spontaneous
  Country: US (occurrence: None)
  Receive Date: 20240325
  Receipt Date: 20240325
  Transmission Date: 20240409
  Serious: Yes (Other)
  Sender: FDA-Public Use
  Company Number: None

PATIENT
  Age: 33 Year
  Sex: Female
  Weight: 60.75 kg

DRUGS (6)
  1. BUPRENORPHINE AND NALOXONE SUBLINGUAL FILM [Suspect]
     Active Substance: BUPRENORPHINE HYDROCHLORIDE\NALOXONE HYDROCHLORIDE
     Indication: Drug withdrawal syndrome
     Dosage: OTHER QUANTITY : 28 UNSURE?;?FREQUENCY : TWICE A DAY;?
     Route: 060
     Dates: start: 20240313, end: 20240325
  2. NICOTINE TRANSDERMAL SYSTEM [Concomitant]
     Active Substance: NICOTINE
  3. IBUPROFEN [Concomitant]
     Active Substance: IBUPROFEN
  4. Colgate mouth rinse [Concomitant]
  5. PURE BAKING SODA [Concomitant]
     Active Substance: SODIUM BICARBONATE
  6. Oragel [Concomitant]

REACTIONS (6)
  - Oral discomfort [None]
  - Paraesthesia oral [None]
  - Lip swelling [None]
  - Stomatitis [None]
  - Hypophagia [None]
  - Pain [None]
